FAERS Safety Report 7841440-8 (Version None)
Quarter: 2011Q4

REPORT INFORMATION
  Report Type: 
  Country: None (occurrence: None)
  Receive Date: 20111025
  Receipt Date: 20111013
  Transmission Date: 20120403
  Serious: Yes (Other)
  Sender: FDA-Public Use
  Company Number: US-JNJFOC-20111006252

PATIENT
  Age: 65 Year
  Sex: Male

DRUGS (1)
  1. REMICADE [Suspect]
     Indication: RHEUMATOID ARTHRITIS
     Route: 042
     Dates: start: 20000101

REACTIONS (5)
  - LUNG NEOPLASM [None]
  - PYREXIA [None]
  - DYSPNOEA [None]
  - CHILLS [None]
  - BACTERIAL INFECTION [None]
